FAERS Safety Report 9638400 (Version 1)
Quarter: 2013Q4

REPORT INFORMATION
  Report Type: Spontaneous
  Country: US (occurrence: None)
  Receive Date: 20131021
  Receipt Date: 20131021
  Transmission Date: 20140711
  Serious: Yes (Hospitalization)
  Sender: FDA-Public Use
  Company Number: None

PATIENT
  Age: 35 Year
  Sex: Female

DRUGS (3)
  1. TRAMADOL [Suspect]
     Indication: PAIN
     Route: 048
     Dates: start: 201309, end: 201310
  2. SERTRALINE [Concomitant]
  3. VICODIN ES [Concomitant]

REACTIONS (1)
  - Convulsion [None]
